FAERS Safety Report 9281571 (Version 2)
Quarter: 2013Q2

REPORT INFORMATION
  Report Type: Spontaneous
  Country: US (occurrence: US)
  Receive Date: 20130509
  Receipt Date: 20130620
  Transmission Date: 20140414
  Serious: Yes (Hospitalization)
  Sender: FDA-Public Use
  Company Number: US-ASTRAZENECA-2013SE30876

PATIENT
  Age: 998 Month
  Sex: Male
  Weight: 69.9 kg

DRUGS (7)
  1. SYMBICORT [Suspect]
     Indication: CHRONIC OBSTRUCTIVE PULMONARY DISEASE
     Dosage: 160/4.5 MCG, 1 PUFFS, BID
     Route: 055
  2. SYMBICORT [Suspect]
     Indication: CHRONIC OBSTRUCTIVE PULMONARY DISEASE
     Dosage: 160/4.5 MCG, 1 PUFFS, BID
     Route: 055
  3. SYMBICORT [Suspect]
     Indication: CHRONIC OBSTRUCTIVE PULMONARY DISEASE
     Dosage: 160/4.5 MCG, 2 PUFFS, BID
     Route: 055
  4. BLOOD PRESSURE MEDICATION [Concomitant]
     Indication: BLOOD PRESSURE
     Route: 048
  5. IPRATROPIUM BROMIDE [Concomitant]
     Indication: CHRONIC OBSTRUCTIVE PULMONARY DISEASE
     Route: 055
     Dates: start: 2010
  6. ALBUTEROL [Concomitant]
     Indication: CHRONIC OBSTRUCTIVE PULMONARY DISEASE
     Route: 055
     Dates: start: 2010
  7. PROAIR [Concomitant]
     Indication: EMERGENCY CARE
     Dosage: PRN
     Route: 055
     Dates: start: 2010

REACTIONS (10)
  - Pneumonia [Recovered/Resolved]
  - Dyspnoea exertional [Unknown]
  - Visual impairment [Unknown]
  - Abnormal loss of weight [Unknown]
  - Hearing impaired [Unknown]
  - Activities of daily living impaired [Unknown]
  - Malaise [Unknown]
  - Mental impairment [Unknown]
  - Intentional drug misuse [Unknown]
  - Drug dose omission [Unknown]
